FAERS Safety Report 4487938-4 (Version None)
Quarter: 2004Q4

REPORT INFORMATION
  Report Type: 
  Country: None (occurrence: None)
  Receive Date: 20041026
  Receipt Date: 20041008
  Transmission Date: 20050328
  Serious: Yes (Other)
  Sender: FDA-Public Use
  Company Number: USA041080573

PATIENT
  Age: 50 Year
  Sex: Male
  Weight: 82 kg

DRUGS (9)
  1. ZYPREXA [Suspect]
     Indication: BIPOLAR DISORDER
     Dosage: 50 MG
     Dates: start: 19970101
  2. LITHIUM [Concomitant]
  3. DEPAKOTE [Concomitant]
  4. LASIX [Concomitant]
  5. ATENOLOL [Concomitant]
  6. CLONOPIN (CLONAZEPAM) [Concomitant]
  7. BAYCOL [Concomitant]
  8. VIOXX [Concomitant]
  9. MELLARIL [Concomitant]

REACTIONS (8)
  - DEPRESSION [None]
  - DIABETES MELLITUS [None]
  - MANIA [None]
  - OEDEMA [None]
  - RENAL FAILURE [None]
  - STRESS SYMPTOMS [None]
  - TREATMENT NONCOMPLIANCE [None]
  - WEIGHT INCREASED [None]
